FAERS Safety Report 5271230-4 (Version None)
Quarter: 2007Q1

REPORT INFORMATION
  Report Type: 
  Country: None (occurrence: None)
  Receive Date: 20061214
  Receipt Date: 20051031
  Transmission Date: 20070707
  Serious: Yes (Hospitalization)
  Sender: FDA-Public Use
  Company Number: 2005109492

PATIENT
  Age: 75 Year
  Sex: Male
  Weight: 88.4514 kg

DRUGS (4)
  1. BEXTRA [Suspect]
     Indication: OSTEOARTHRITIS
     Dosage: 10 MG (10 MG,1 IN 1 D),ORAL
     Route: 048
     Dates: start: 20030101, end: 20050401
  2. VIOXX [Suspect]
     Indication: OSTEOARTHRITIS
     Dosage: 25 MG (25 MG,1 IN 1 D)
     Dates: start: 20020101
  3. ALEVE [Suspect]
     Indication: ILL-DEFINED DISORDER
     Dosage: (2 IN 1 D)
  4. ALCOHOL (ETHANOL) [Concomitant]

REACTIONS (8)
  - ABDOMINAL PAIN [None]
  - HAEMATEMESIS [None]
  - MELAENA [None]
  - NAUSEA [None]
  - PAIN [None]
  - PALPITATIONS [None]
  - ULCER HAEMORRHAGE [None]
  - VOMITING [None]
